FAERS Safety Report 8715187 (Version 2)
Quarter: 2012Q4

REPORT INFORMATION
  Report Type: 
  Country: US (occurrence: US)
  Receive Date: 20120809
  Receipt Date: 20121004
  Transmission Date: 20130627
  Serious: Yes (Other)
  Sender: FDA-Public Use
  Company Number: US-TEVA-352437USA

PATIENT
  Age: 14 Year
  Sex: Male

DRUGS (1)
  1. CLARAVIS [Suspect]
     Route: 048

REACTIONS (3)
  - Suicidal ideation [Recovered/Resolved]
  - Depressed mood [Unknown]
  - Mood altered [Recovered/Resolved]
